FAERS Safety Report 18344982 (Version 1)
Quarter: 2020Q4

REPORT INFORMATION
  Report Type: Spontaneous
  Country: DE (occurrence: DE)
  Receive Date: 20201005
  Receipt Date: 20201005
  Transmission Date: 20210114
  Serious: Yes (Congenital Anomaly, Other)
  Sender: FDA-Public Use
  Company Number: NVSC2020DE264143

PATIENT
  Age: 1 Day
  Sex: Female
  Weight: 1.28 kg

DRUGS (10)
  1. NIFEDIPIN [Concomitant]
     Active Substance: NIFEDIPINE
     Indication: FOETAL EXPOSURE DURING PREGNANCY
     Dosage: MATERNAL DOSE; UNK (15 [MG/D (3X5 MG)], 22. - 32. GESTATIONAL WEEK)
     Route: 064
  2. PRESINOL [Concomitant]
     Active Substance: METHYLDOPA
     Indication: FOETAL EXPOSURE DURING PREGNANCY
     Dosage: MATERNAL DOSE; UNK (500 [MG/D (2X250 MG) ], 18.4. - 32. GESTATIONAL WEEK)
     Route: 064
     Dates: start: 20190428, end: 20190731
  3. ACETAZOLAMIDE. [Concomitant]
     Active Substance: ACETAZOLAMIDE
     Indication: FOETAL EXPOSURE DURING PREGNANCY
     Dosage: MATERNAL DOSE; UNK (500 [MG/D ], 0. - 5.5. GESTATIONAL WEEK)
     Route: 064
     Dates: start: 20181219, end: 20190128
  4. VALSARTAN. [Suspect]
     Active Substance: VALSARTAN
     Indication: FOETAL EXPOSURE DURING PREGNANCY
     Dosage: MATERNAL DOSE; UNK (80 [MG/D ], 0. - 8 GESTATIONAL WEEK)
     Route: 064
  5. DULOXETINE. [Suspect]
     Active Substance: DULOXETINE
     Indication: FOETAL EXPOSURE DURING PREGNANCY
     Dosage: MATERNAL DOSE; UNK (90 [MG/D (BIS 60)], 0. - 32. GESTATIONAL WEEK)
     Route: 064
     Dates: start: 20181219, end: 20190731
  6. BISOPROLOL [Suspect]
     Active Substance: BISOPROLOL
     Indication: FOETAL EXPOSURE DURING PREGNANCY
     Dosage: MATERNAL DOSE; UNK (5 [MG/D ], 0. - 8. GESTATIONAL WEEK)
     Route: 064
  7. QUETIAPINE. [Suspect]
     Active Substance: QUETIAPINE
     Indication: FOETAL EXPOSURE DURING PREGNANCY
     Dosage: MATERNAL DOSE; UNK (125 [MG/D (BIS 62.5)], 0. - 32. GESTATIONAL WEEK)
     Route: 064
     Dates: start: 20181219, end: 20190731
  8. HYDROCHLOROTHIAZIDE. [Suspect]
     Active Substance: HYDROCHLOROTHIAZIDE
     Indication: FOETAL EXPOSURE DURING PREGNANCY
     Dosage: MATERNAL DOSE; UNK (25 [MG/D ], 0. - 8. GESTATIONAL WEEK)
     Route: 064
  9. ARIPIPRAZOL [Concomitant]
     Active Substance: ARIPIPRAZOLE
     Indication: FOETAL EXPOSURE DURING PREGNANCY
     Dosage: MATERNAL DOSE; UNK (5 [MG/D ], 0. - 5.5. GESTATIONAL WEEK)
     Route: 064
     Dates: start: 20181219, end: 20190128
  10. ESCITALOPRAM [Concomitant]
     Active Substance: ESCITALOPRAM OXALATE
     Indication: FOETAL EXPOSURE DURING PREGNANCY
     Dosage: UMATERNAL DOSE; UNK (5 [MG/D ], 13. - 20.1. GESTATIONAL WEEK)
     Route: 064

REACTIONS (9)
  - Atrial septal defect [Recovered/Resolved]
  - Foetal growth restriction [Unknown]
  - Single umbilical artery [Unknown]
  - Congenital hypothyroidism [Unknown]
  - Congenital cerebral cyst [Unknown]
  - Neutropenia [Unknown]
  - Foetal exposure during pregnancy [Unknown]
  - Ventricular septal defect [Recovering/Resolving]
  - Foetal heart rate deceleration abnormality [Unknown]

NARRATIVE: CASE EVENT DATE: 20190731
